FAERS Safety Report 11272256 (Version 1)
Quarter: 2015Q3

REPORT INFORMATION
  Report Type: Spontaneous
  Country: US (occurrence: None)
  Receive Date: 20150713
  Receipt Date: 20150713
  Transmission Date: 20151125
  Serious: Yes (Disabling)
  Sender: FDA-Public Use
  Company Number: None

PATIENT
  Age: 69 Year
  Sex: Male
  Weight: 127.01 kg

DRUGS (1)
  1. XTANDI [Suspect]
     Active Substance: ENZALUTAMIDE
     Indication: PROSTATE CANCER METASTATIC
     Route: 048

REACTIONS (8)
  - Gait disturbance [None]
  - Blood urine present [None]
  - Myalgia [None]
  - Dyspnoea [None]
  - Prostatic specific antigen increased [None]
  - Quality of life decreased [None]
  - Urinary tract infection [None]
  - Bone pain [None]

NARRATIVE: CASE EVENT DATE: 20150615
